FAERS Safety Report 4963817-0 (Version None)
Quarter: 2006Q1

REPORT INFORMATION
  Report Type: 
  Country: None (occurrence: None)
  Receive Date: 20060330
  Receipt Date: 20060313
  Transmission Date: 20060701
  Serious: Yes (Death)
  Sender: FDA-Public Use
  Company Number: GB200602003932

PATIENT
  Age: 77 Year
  Sex: Female
  Weight: 51.9 kg

DRUGS (7)
  1. FORTEO [Suspect]
     Indication: OSTEOPOROSIS
     Dosage: 20 UG, SUBCUTANEOUS
     Route: 058
     Dates: start: 20050915
  2. FORTEO PEN (FORTEO PEN) PEN, DISPOSABLE [Concomitant]
  3. ATENOLOL [Concomitant]
  4. DIGOXIN [Concomitant]
  5. FRUMIL (AMILORIDE HYDROCHLORIDE, FUROSEMIDE) TABLET [Concomitant]
  6. WARFARIN SODIUM [Concomitant]
  7. CALCICHEW-D3 (CALCIUM CARBONATE, COLECALCIFEROL) [Concomitant]

REACTIONS (2)
  - CARDIAC DEATH [None]
  - SUDDEN DEATH [None]
